FAERS Safety Report 9014665 (Version 1)
Quarter: 2013Q1

REPORT INFORMATION
  Report Type: Report from Study
  Country: ES (occurrence: ES)
  Receive Date: 20130115
  Receipt Date: 20130115
  Transmission Date: 20140127
  Serious: Yes (Hospitalization)
  Sender: FDA-Public Use
  Company Number: ES-ROCHE-1178848

PATIENT
  Age: 41 Year
  Sex: Male

DRUGS (2)
  1. TRETINOIN [Suspect]
     Indication: ACUTE PROMYELOCYTIC LEUKAEMIA
     Route: 048
     Dates: start: 20121128
  2. IDARUBICIN [Concomitant]
     Route: 065
     Dates: start: 20121130

REACTIONS (2)
  - Myopericarditis [Recovered/Resolved]
  - Retinoic acid syndrome [Recovered/Resolved]
